FAERS Safety Report 7140944-3 (Version None)
Quarter: 2010Q4

REPORT INFORMATION
  Report Type: 
  Country: None (occurrence: None)
  Receive Date: 20101201
  Receipt Date: 20101201
  Transmission Date: 20110411
  Serious: Yes (Hospitalization)
  Sender: FDA-Public Use
  Company Number: None

PATIENT
  Age: 69 Year
  Sex: Female
  Weight: 66.6 kg

DRUGS (11)
  1. ABRAXANE [Suspect]
  2. METFORMIN HCL [Concomitant]
  3. TIMOLOL MALEATE [Concomitant]
  4. GLIMEPIRIDE [Concomitant]
  5. CITALOPRAM [Concomitant]
  6. PRAVASTATIN [Concomitant]
  7. VITAMIN B-12 [Concomitant]
  8. VITAMIN E [Concomitant]
  9. VITAMIN B6 [Concomitant]
  10. MINERAL PHACTOR IMMUNE SYSTEM SUPPORT -PROPRIETARY BLEND CONTAINING CH [Concomitant]
  11. MAGNOLIA BARK EXTRACT [Concomitant]

REACTIONS (1)
  - PNEUMONIA [None]
